FAERS Safety Report 6886773-7 (Version None)
Quarter: 2010Q3

REPORT INFORMATION
  Report Type: 
  Country: None (occurrence: None)
  Receive Date: 20100730
  Receipt Date: 20100720
  Transmission Date: 20110219
  Serious: Yes (Other)
  Sender: FDA-Public Use
  Company Number: US-PFIZER INC-2010091392

PATIENT
  Sex: Female

DRUGS (2)
  1. AROMASIN [Suspect]
     Dosage: UNK
     Dates: start: 20100401
  2. SYNTHROID [Concomitant]
     Dosage: 88 MCG, DAILY

REACTIONS (1)
  - DRY EYE [None]
